FAERS Safety Report 7153899-2 (Version None)
Quarter: 2010Q4

REPORT INFORMATION
  Report Type: 
  Country: None (occurrence: None)
  Receive Date: 20101213
  Receipt Date: 20101130
  Transmission Date: 20110411
  Serious: Yes (Other)
  Sender: FDA-Public Use
  Company Number: PHEH2008US02877

PATIENT
  Sex: Male

DRUGS (12)
  1. AREDIA [Suspect]
     Dosage: UNK
     Dates: start: 20000101
  2. ZOMETA [Suspect]
  3. ZOCOR [Concomitant]
  4. PAXIL [Concomitant]
  5. ACYCLOVIR SODIUM [Concomitant]
  6. PHENYTOIN [Concomitant]
  7. INSULIN [Concomitant]
  8. TOPROL-XL [Concomitant]
  9. PERIDEX [Concomitant]
  10. CIPRO [Concomitant]
  11. PEN-VEE K [Concomitant]
  12. DOXYCYCLINE [Concomitant]

REACTIONS (42)
  - ACTINIC KERATOSIS [None]
  - ACTIVITIES OF DAILY LIVING IMPAIRED [None]
  - ADENOCARCINOMA [None]
  - ALPHA HAEMOLYTIC STREPTOCOCCAL INFECTION [None]
  - ANXIETY [None]
  - APPENDICECTOMY [None]
  - BENIGN PROSTATIC HYPERPLASIA [None]
  - BILIARY DILATATION [None]
  - BONE LESION [None]
  - COUGH [None]
  - DIABETES MELLITUS [None]
  - DISABILITY [None]
  - DYSPNOEA [None]
  - ENTEROBACTER INFECTION [None]
  - EXERCISE TOLERANCE DECREASED [None]
  - HEMIPARESIS [None]
  - HEPATIC LESION [None]
  - HERPES VIRUS INFECTION [None]
  - INJURY [None]
  - JAUNDICE CHOLESTATIC [None]
  - JEJUNECTOMY [None]
  - MELANOCYTIC NAEVUS [None]
  - METASTATIC NEOPLASM [None]
  - NEOPLASM MALIGNANT [None]
  - NEPHRECTOMY [None]
  - OSTEOMYELITIS ACUTE [None]
  - OSTEONECROSIS OF JAW [None]
  - PAIN [None]
  - PANCREATIC CARCINOMA [None]
  - PANCREATIC DUCT OBSTRUCTION [None]
  - PANCREATICODUODENECTOMY [None]
  - PROSTATOMEGALY [None]
  - RENAL CELL CARCINOMA [None]
  - RENAL CYST [None]
  - RENAL MASS [None]
  - SEROSITIS [None]
  - SMALL INTESTINE CARCINOMA [None]
  - SQUAMOUS CELL CARCINOMA [None]
  - STENT REMOVAL [None]
  - TRANSIENT ISCHAEMIC ATTACK [None]
  - TRANSURETHRAL PROSTATECTOMY [None]
  - URINARY RETENTION [None]
